FAERS Safety Report 13402476 (Version 1)
Quarter: 2017Q2

REPORT INFORMATION
  Report Type: Spontaneous
  Country: DE (occurrence: DE)
  Receive Date: 20170404
  Receipt Date: 20170404
  Transmission Date: 20170830
  Serious: Yes (Other)
  Sender: FDA-Public Use
  Company Number: DE-ALLERGAN-1711627US

PATIENT
  Age: 77 Year
  Sex: Female
  Weight: 54 kg

DRUGS (2)
  1. PROLIA [Concomitant]
     Active Substance: DENOSUMAB
     Indication: PRODUCT USED FOR UNKNOWN INDICATION
     Dosage: 1 DF, EVERY SIX MONTHS
     Route: 030
     Dates: start: 2015
  2. TROSPIUM CHLORIDE - BP [Suspect]
     Active Substance: TROSPIUM CHLORIDE
     Indication: MICTURITION DISORDER
     Dosage: 1 UNK, UNK
     Route: 048
     Dates: start: 20170210, end: 20170218

REACTIONS (1)
  - Back pain [Recovered/Resolved]

NARRATIVE: CASE EVENT DATE: 20170218
